FAERS Safety Report 9301776 (Version 1)
Quarter: 2013Q2

REPORT INFORMATION
  Report Type: Spontaneous
  Country: US (occurrence: US)
  Receive Date: 20130521
  Receipt Date: 20130521
  Transmission Date: 20140414
  Serious: Yes (Death)
  Sender: FDA-Public Use
  Company Number: US-TEVA-348054USA

PATIENT
  Sex: Female

DRUGS (4)
  1. FENTORA [Suspect]
     Indication: TONGUE NEOPLASM MALIGNANT STAGE UNSPECIFIED
     Dosage: 200 MICROGRAM DAILY;
     Route: 002
  2. FENTORA [Suspect]
     Indication: BONE CANCER
  3. METHADONE [Concomitant]
  4. OXYCODONE [Concomitant]

REACTIONS (1)
  - Death [Fatal]
